FAERS Safety Report 12284465 (Version 1)
Quarter: 2016Q2

REPORT INFORMATION
  Report Type: Spontaneous
  Country: US (occurrence: US)
  Receive Date: 20160420
  Receipt Date: 20160420
  Transmission Date: 20160815
  Serious: No
  Sender: FDA-Public Use
  Company Number: US-TEVA-605325USA

PATIENT
  Sex: Male
  Weight: 69.01 kg

DRUGS (2)
  1. ADCIRCA [Concomitant]
     Active Substance: TADALAFIL
  2. EPOPROSTENOL. [Suspect]
     Active Substance: EPOPROSTENOL
     Indication: PULMONARY ARTERIAL HYPERTENSION
     Dosage: 23.7 NG/KG/MIN
     Route: 042
     Dates: start: 20150707

REACTIONS (2)
  - Infusion site pain [Unknown]
  - Asthenia [Unknown]
